FAERS Safety Report 4873867-0 (Version None)
Quarter: 2006Q1

REPORT INFORMATION
  Report Type: 
  Country: None (occurrence: None)
  Receive Date: 20060104
  Receipt Date: 20051215
  Transmission Date: 20060701
  Serious: Yes (Hospitalization)
  Sender: FDA-Public Use
  Company Number: TRP_0674_2005

PATIENT
  Age: 52 Year
  Sex: Female
  Weight: 63.5036 kg

DRUGS (24)
  1. RIBASPHERE [Suspect]
     Indication: HEPATITIS C
     Dosage: DF, PO
     Route: 048
     Dates: start: 20050925
  2. PEG-INTRON [Suspect]
     Indication: HEPATITIS C
     Dosage: DF, SC
     Route: 058
     Dates: start: 20050925
  3. MS CONTIN [Suspect]
     Dosage: DF
     Dates: start: 20051001
  4. MS CONTIN [Suspect]
     Dosage: DF
     Dates: end: 20051001
  5. ASPIRIN [Concomitant]
  6. BUSPAR [Concomitant]
  7. CALCIUM GLUCONATE [Concomitant]
  8. GLUCOSAMINE / CHONDROTIN [Concomitant]
  9. HYDROMORPHONE HCL [Concomitant]
  10. INDERAL [Concomitant]
  11. LECITHIN [Concomitant]
  12. LEVOTHYROXINE SODIUM [Concomitant]
  13. MORPHINE [Concomitant]
  14. MULTI-VITAMIN [Concomitant]
  15. OMEGA 3 [Concomitant]
  16. PROMETHAZINE HCL [Concomitant]
  17. VITAMIN A AND D [Concomitant]
  18. VITAMIN B COMPLEX CAP [Concomitant]
  19. ASCORBIC ACID [Concomitant]
  20. VITAMIN E [Concomitant]
  21. WELLBUTRIN [Concomitant]
  22. MORPHINE [Concomitant]
  23. FLAXSEED [Concomitant]
  24. CALCIUM (CAPSULES) [Concomitant]

REACTIONS (12)
  - ASTHENIA [None]
  - BLOOD POTASSIUM DECREASED [None]
  - DEHYDRATION [None]
  - DISTURBANCE IN ATTENTION [None]
  - DIZZINESS [None]
  - DRUG WITHDRAWAL SYNDROME [None]
  - INJECTION SITE BRUISING [None]
  - INJECTION SITE INDURATION [None]
  - MEMORY IMPAIRMENT [None]
  - MYALGIA [None]
  - PNEUMONIA [None]
  - WEIGHT DECREASED [None]
